FAERS Safety Report 8490944-6 (Version None)
Quarter: 2012Q3

REPORT INFORMATION
  Report Type: 
  Country: None (occurrence: None)
  Receive Date: 20120706
  Receipt Date: 20120627
  Transmission Date: 20120928
  Serious: Yes (Hospitalization)
  Sender: FDA-Public Use
  Company Number: DE-CELGENEUS-062-21880-11102419

PATIENT
  Age: 66 Year
  Sex: Male
  Weight: 66 kg

DRUGS (16)
  1. PANTOPRAZOLE [Concomitant]
     Indication: GASTROOESOPHAGEAL REFLUX PROPHYLAXIS
     Dosage: 40 MILLIGRAM
     Route: 048
     Dates: start: 20110501
  2. METOPROLOL TARTRATE [Concomitant]
     Dosage: 47.5 MILLIGRAM
     Route: 048
     Dates: start: 20110501
  3. MYFORTIC [Concomitant]
     Indication: PROPHYLAXIS AGAINST TRANSPLANT REJECTION
     Dosage: 1440 MILLIGRAM
     Route: 048
     Dates: start: 20110504
  4. AMIODARONE HCL [Concomitant]
     Dosage: 200 MILLIGRAM
     Route: 048
     Dates: start: 20110501
  5. ACYCLOVIR [Concomitant]
     Indication: PROPHYLAXIS
     Dosage: 1600 MILLIGRAM
     Route: 048
     Dates: start: 20110524
  6. REVLIMID [Suspect]
     Indication: MULTIPLE MYELOMA
     Route: 048
     Dates: start: 20100713, end: 20101031
  7. MAGNESIUM VERLA [Concomitant]
     Dosage: 6 DOSAGE FORMS
     Route: 048
     Dates: start: 20110501
  8. PAMIDRONATE DISODIUM [Concomitant]
     Indication: MULTIPLE MYELOMA
     Route: 041
     Dates: start: 20110620
  9. DEXAMETHASONE SODIUM PHOSPHATE [Suspect]
     Indication: MULTIPLE MYELOMA
     Route: 048
     Dates: start: 20100713, end: 20101030
  10. LEVOFLOXACIN [Concomitant]
     Indication: INFECTION PROPHYLAXIS
     Dosage: 500 MILLIGRAM
     Route: 048
     Dates: start: 20110428
  11. PENTAMIDINE ISETHIONATE [Concomitant]
     Indication: PROPHYLAXIS
     Route: 041
     Dates: start: 20110501
  12. ENOXAPARIN SODIUM [Concomitant]
     Indication: THROMBOSIS PROPHYLAXIS
     Dosage: .6 MILLILITER
     Route: 058
     Dates: start: 20110501
  13. ADRIAMYCIN PFS [Suspect]
     Indication: MULTIPLE MYELOMA
     Route: 041
     Dates: start: 20100713, end: 20101015
  14. POSACONAZOLE [Concomitant]
     Dosage: 20 MILLILITER
     Route: 048
     Dates: start: 20110603
  15. PAMIDRONATE DISODIUM [Concomitant]
     Indication: OSTEOLYSIS
     Route: 065
  16. SANDIMMUNE [Concomitant]
     Indication: PROPHYLAXIS AGAINST TRANSPLANT REJECTION
     Dosage: 200 MILLIGRAM
     Route: 048
     Dates: start: 20110610

REACTIONS (1)
  - POST TRANSPLANT LYMPHOPROLIFERATIVE DISORDER [None]
